FAERS Safety Report 6314213-5 (Version None)
Quarter: 2009Q3

REPORT INFORMATION
  Report Type: 
  Country: None (occurrence: None)
  Receive Date: 20090817
  Receipt Date: 20090803
  Transmission Date: 20100115
  Serious: Yes (Hospitalization)
  Sender: FDA-Public Use
  Company Number: 2009AL001789

PATIENT
  Age: 64 Year
  Sex: Male

DRUGS (1)
  1. DIGOXIN [Suspect]
     Dosage: PO
     Route: 048
     Dates: start: 20070501, end: 20080301

REACTIONS (13)
  - ABDOMINAL PAIN [None]
  - ABDOMINAL PAIN LOWER [None]
  - ATAXIA [None]
  - ATRIAL FIBRILLATION [None]
  - DIARRHOEA [None]
  - ECONOMIC PROBLEM [None]
  - HYPERTENSION [None]
  - KNEE ARTHROPLASTY [None]
  - MULTIPLE INJURIES [None]
  - NAUSEA [None]
  - OSTEOARTHRITIS [None]
  - PAIN [None]
  - VOMITING [None]
